FAERS Safety Report 14248349 (Version 1)
Quarter: 2017Q4

REPORT INFORMATION
  Report Type: Spontaneous
  Country: US (occurrence: US)
  Receive Date: 20171202
  Receipt Date: 20171202
  Transmission Date: 20180321
  Serious: Yes (Hospitalization)
  Sender: FDA-Public Use
  Company Number: None

PATIENT
  Sex: Male
  Weight: 25.2 kg

DRUGS (9)
  1. LDN [Concomitant]
     Active Substance: NALTREXONE
  2. TRIAMCINOLONE [Suspect]
     Active Substance: TRIAMCINOLONE
     Indication: DERMATITIS ATOPIC
     Dosage: EVERY 6 HOURS TOPICAL
     Route: 061
     Dates: start: 20100110, end: 20170323
  3. FISH, AND COD LIVER OILS [Concomitant]
  4. VITAMIN C [Concomitant]
     Active Substance: ASCORBIC ACID
  5. VITAMIN B [Concomitant]
     Active Substance: VITAMIN B
  6. VITAMIN D [Concomitant]
     Active Substance: CHOLECALCIFEROL
  7. MULTI VITAMIN [Concomitant]
     Active Substance: VITAMINS
  8. OMEGA [Concomitant]
     Active Substance: CONVALLARIA MAJALIS\CRATAEGUS LAEVIGATA LEAF\PROXYPHYLLINE
  9. TRIAMCINOLONE [Suspect]
     Active Substance: TRIAMCINOLONE
     Indication: ECZEMA
     Dosage: EVERY 6 HOURS TOPICAL
     Route: 061
     Dates: start: 20100110, end: 20170323

REACTIONS (4)
  - Wound secretion [None]
  - Erythema [None]
  - Therapy cessation [None]
  - Thermal burn [None]

NARRATIVE: CASE EVENT DATE: 20140926
